FAERS Safety Report 6111445-6 (Version None)
Quarter: 2009Q1

REPORT INFORMATION
  Report Type: 
  Country: None (occurrence: None)
  Receive Date: 20090309
  Receipt Date: 20090226
  Transmission Date: 20090719
  Serious: Yes (Hospitalization)
  Sender: FDA-Public Use
  Company Number: 2009AL001194

PATIENT
  Age: 76 Year
  Sex: Female

DRUGS (7)
  1. RAMIPRIL [Suspect]
     Indication: HYPERTENSION
     Dosage: 2.5 MG; QD; PO
     Route: 048
     Dates: start: 20060601
  2. TRIMIPRAMINE CAPSULES 100 MG (ATLLC) (TRIMIPRAMINE CAPSULES 100 MG (AT [Suspect]
     Indication: SLEEP DISORDER
     Dosage: 100 MG; QD; PO
     Route: 048
     Dates: start: 20060601, end: 20080908
  3. TOPASEMIDE [Concomitant]
  4. ASS ^CT-ARZNEIMTTEL^ [Concomitant]
  5. BISOPROLOL [Concomitant]
  6. OMEP [Concomitant]
  7. TIAPRIDEX [Concomitant]

REACTIONS (6)
  - BLOOD CREATININE ABNORMAL [None]
  - BLOOD POTASSIUM ABNORMAL [None]
  - DEHYDRATION [None]
  - HAEMATOCRIT ABNORMAL [None]
  - HYPONATRAEMIA [None]
  - SYNCOPE [None]
